FAERS Safety Report 9511045 (Version 1)
Quarter: 2013Q1

REPORT INFORMATION
  Report Type: Spontaneous
  Country: US (occurrence: None)
  Receive Date: 20130305
  Receipt Date: 20130305
  Transmission Date: 20140127
  Serious: Yes (Other)
  Sender: FDA-Public Use
  Company Number: 163-21880-11073236

PATIENT
  Age: 76 Year
  Sex: Male
  Weight: 79.83 kg

DRUGS (17)
  1. REVLIMID (LENALIDOMIDE) (CAPSULES) [Suspect]
     Indication: PLASMA CELL MYELOMA
     Dosage: 25 MG, DAILY X 21 DAYS, THEN OFF X 7 DAYS, PO
     Route: 048
     Dates: start: 20110223, end: 20110420
  2. TRIAMTERENE-HCTZ (DYAZIDE) (CAPSULES) [Concomitant]
  3. TAMSULOSIN (TAMSULOSIN) (CAPSULES) [Concomitant]
  4. AVODART (DUTASTERIDE) (CAPSULES) [Concomitant]
  5. ZYRTEC D (CIRRUS) (TABLETS) [Concomitant]
  6. DEXAMETHASONE (DEXAMEHTASONE) (TABLETS) [Concomitant]
  7. LIPITOR (ATORVASTATIN) (TABLETS) [Concomitant]
  8. MAXZIDE (DYAZIDE) (TABLETS) [Concomitant]
  9. POTASSIUM CHLORIDE (POTASSIUM CHLORIDE) (TABLETS) [Concomitant]
  10. OMEPRAZOLE (OMEPRAZOLE) (CAPSULES) [Concomitant]
  11. ALBUTEROL SULFATE (SALBUTOMOL SULFATE (AEROSOL FOR INHALATION)? [Concomitant]
  12. ALLERTEC (CETIRIZINE HDROCHLORIDE) (SUSTAINED-RELEASE TABLET) [Concomitant]
  13. LOVENOX (HEPARIN-FRACTION, SODIUM SALT) (INJECTION) [Concomitant]
  14. POTASSIUM GLUCONATE (POTASSIUM GLUCONATE) (TABLETS) [Concomitant]
  15. SINGULAIR (MONTELUKAST SODIUM) (UNKNOWN) [Concomitant]
  16. MULTIVITAMINS (MULTIVITAMINS) (UNKNOWN) [Concomitant]
  17. VITAMIN C (ASCORBIC ACID) (CHEWABLE TABLET) [Concomitant]

REACTIONS (2)
  - Dermatitis allergic [None]
  - Local swelling [None]
